FAERS Safety Report 25724662 (Version 2)
Quarter: 2025Q3

REPORT INFORMATION
  Report Type: Report from Study
  Country: EU (occurrence: EU)
  Receive Date: 20250826
  Receipt Date: 20250911
  Transmission Date: 20251021
  Serious: No
  Sender: ABBVIE
  Company Number: EU-ABBVIE-6427479

PATIENT
  Age: 60 Year
  Sex: Female
  Weight: 119 kg

DRUGS (2)
  1. UPADACITINIB [Suspect]
     Active Substance: UPADACITINIB
     Indication: Psoriatic arthropathy
     Route: 048
     Dates: start: 20240228, end: 20250613
  2. UPADACITINIB [Suspect]
     Active Substance: UPADACITINIB
     Indication: Psoriatic arthropathy
     Route: 048
     Dates: start: 20250626

REACTIONS (1)
  - Arthroscopy [Recovered/Resolved]

NARRATIVE: CASE EVENT DATE: 20250620
